FAERS Safety Report 8444804-7 (Version None)
Quarter: 2012Q2

REPORT INFORMATION
  Report Type: 
  Country: None (occurrence: None)
  Receive Date: 20120618
  Receipt Date: 20120611
  Transmission Date: 20120825
  Serious: Yes (Hospitalization, Other)
  Sender: FDA-Public Use
  Company Number: PHHY2012FR051058

PATIENT
  Sex: Male

DRUGS (10)
  1. GLUCOPHAGE [Concomitant]
  2. SITAGLIPTIN [Concomitant]
     Dosage: UNK
     Dates: start: 20120207
  3. IPERTEN [Concomitant]
  4. DIPROSALIC [Concomitant]
     Indication: PSORIASIS
  5. JANUMET [Concomitant]
  6. RASILEZ [Suspect]
     Indication: HYPERTENSION
     Dosage: 150 MG, QD
     Dates: start: 20110101, end: 20110920
  7. METFORMIN HCL [Concomitant]
     Indication: DIABETES MELLITUS
     Dosage: UNK
  8. DIAMICRON [Concomitant]
     Indication: DIABETES MELLITUS
  9. JANUVIA [Suspect]
     Indication: DIABETES MELLITUS
     Dosage: 100 MG, QD
     Dates: start: 20090101
  10. VALSARTAN  AND HYDROCHLOROTHIAZIDE [Concomitant]
     Dosage: UNK
     Dates: start: 20110920

REACTIONS (4)
  - DERMATOSIS [None]
  - FACE OEDEMA [None]
  - ERYTHEMA [None]
  - PERIORBITAL DISORDER [None]
